FAERS Safety Report 8227563-2 (Version None)
Quarter: 2012Q1

REPORT INFORMATION
  Report Type: 
  Country: None (occurrence: None)
  Receive Date: 20120322
  Receipt Date: 20120314
  Transmission Date: 20120608
  Serious: Yes (Hospitalization, Other)
  Sender: FDA-Public Use
  Company Number: US-BAYER-2011-052227

PATIENT
  Age: 23 Year
  Sex: Female
  Weight: 104.31 kg

DRUGS (4)
  1. YASMIN [Suspect]
     Dosage: UNK
     Route: 048
     Dates: start: 20070301, end: 20080801
  2. YAZ [Suspect]
     Dosage: UNK
     Route: 048
     Dates: start: 20030801, end: 20050501
  3. TAGAMET [Concomitant]
  4. DARVOCET [Concomitant]

REACTIONS (13)
  - FLATULENCE [None]
  - DIARRHOEA [None]
  - CHOLECYSTECTOMY [None]
  - SCAR [None]
  - DYSPEPSIA [None]
  - EMOTIONAL DISORDER [None]
  - CHOLECYSTITIS CHRONIC [None]
  - ABDOMINAL DISTENSION [None]
  - CONSTIPATION [None]
  - ABORTION SPONTANEOUS [None]
  - ANXIETY [None]
  - DEPRESSION [None]
  - PAIN [None]
